FAERS Safety Report 4747513-0 (Version None)
Quarter: 2005Q3

REPORT INFORMATION
  Report Type: 
  Country: None (occurrence: None)
  Receive Date: 20050818
  Receipt Date: 20050816
  Transmission Date: 20060218
  Serious: Yes (Death, Hospitalization, Other)
  Sender: FDA-Public Use
  Company Number: DE-BRISTOL-MYERS SQUIBB COMPANY-13079553

PATIENT
  Age: 63 Year
  Sex: Male

DRUGS (10)
  1. ETOPOSIDE [Suspect]
     Indication: SMALL CELL LUNG CANCER STAGE UNSPECIFIED
     Route: 042
     Dates: start: 20040429, end: 20040501
  2. CISPLATIN [Suspect]
     Indication: SMALL CELL LUNG CANCER STAGE UNSPECIFIED
     Route: 042
     Dates: start: 20040429, end: 20040429
  3. DURAGESIC-100 [Concomitant]
  4. PANTOZOL [Concomitant]
  5. GRANISETRON HCL [Concomitant]
  6. ALIZAPRIDE HCL [Concomitant]
  7. METOCLOPRAMIDE [Concomitant]
  8. ROFECOXIB [Concomitant]
  9. CEFUROXIME SODIUM [Concomitant]
  10. RED BLOOD CELLS [Concomitant]

REACTIONS (3)
  - DEATH [None]
  - PYREXIA [None]
  - VOMITING [None]
